FAERS Safety Report 6399782-1 (Version None)
Quarter: 2009Q4

REPORT INFORMATION
  Report Type: 
  Country: None (occurrence: None)
  Receive Date: 20091014
  Receipt Date: 20091009
  Transmission Date: 20100525
  Serious: Yes (Hospitalization)
  Sender: FDA-Public Use
  Company Number: US-BRISTOL-MYERS SQUIBB COMPANY-14730493

PATIENT
  Age: 64 Year
  Sex: Male
  Weight: 193 kg

DRUGS (3)
  1. ERBITUX [Suspect]
     Indication: COLON CANCER RECURRENT
     Dates: start: 20090804
  2. BENADRYL [Concomitant]
     Indication: PREMEDICATION
  3. ZOFRAN [Concomitant]
     Indication: PREMEDICATION

REACTIONS (2)
  - ANAPHYLACTOID SHOCK [None]
  - CARDIAC DISORDER [None]
